FAERS Safety Report 8136099-9 (Version None)
Quarter: 2012Q1

REPORT INFORMATION
  Report Type: 
  Country: None (occurrence: None)
  Receive Date: 20120214
  Receipt Date: 20120113
  Transmission Date: 20120608
  Serious: No
  Sender: FDA-Public Use
  Company Number: US-COVIDIEN/TYCO HEALTHCARE/MALLINCKRODT-T201200430

PATIENT
  Sex: Female
  Weight: 90.703 kg

DRUGS (7)
  1. FENTANYL-100 [Suspect]
     Dosage: 75 UG/HR Q 72 H
  2. XANAX [Concomitant]
     Dosage: UNK, PRN
  3. ROXICODONE [Concomitant]
     Dosage: UNK, PRN
  4. FENTANYL-100 [Suspect]
     Dosage: 100 UG/HR, Q 72 H
     Route: 062
     Dates: start: 20111101
  5. OXYCONTIN [Concomitant]
     Dosage: 40 MG, TID
     Dates: start: 20100401, end: 20111001
  6. PRISTIQ [Concomitant]
     Dosage: ONE TABLET, QD
  7. FENTANYL-100 [Suspect]
     Indication: ARTHRALGIA
     Dosage: 50 UG/HR Q 72H
     Route: 062
     Dates: start: 20111001

REACTIONS (3)
  - APPLICATION SITE PAIN [None]
  - APPLICATION SITE ERYTHEMA [None]
  - APPLICATION SITE IRRITATION [None]
